FAERS Safety Report 6697483-3 (Version None)
Quarter: 2010Q2

REPORT INFORMATION
  Report Type: 
  Country: None (occurrence: None)
  Receive Date: 20100422
  Receipt Date: 20100413
  Transmission Date: 20101027
  Serious: Yes (Hospitalization)
  Sender: FDA-Public Use
  Company Number: B0648287A

PATIENT
  Age: 84 Year
  Sex: Male

DRUGS (1)
  1. BUPROPION HYDROCHLORIDE [Suspect]
     Indication: DRUG USE FOR UNKNOWN INDICATION

REACTIONS (12)
  - AGITATION [None]
  - ASTHENIA [None]
  - ATAXIA [None]
  - DELIRIUM [None]
  - DYSARTHRIA [None]
  - FALL [None]
  - HALLUCINATION, VISUAL [None]
  - MOTOR DYSFUNCTION [None]
  - MYOCLONUS [None]
  - SPEECH DISORDER [None]
  - TREMOR [None]
  - VERTIGO [None]
